FAERS Safety Report 9549789 (Version 1)
Quarter: 2013Q3

REPORT INFORMATION
  Report Type: Spontaneous
  Country: US (occurrence: US)
  Receive Date: 20130924
  Receipt Date: 20130924
  Transmission Date: 20140515
  Serious: Yes (Other)
  Sender: FDA-Public Use
  Company Number: US-ELI_LILLY_AND_COMPANY-US201309006067

PATIENT
  Sex: Male

DRUGS (5)
  1. AXIRON [Suspect]
     Indication: BLOOD TESTOSTERONE DECREASED
     Dosage: 30 MG, QD
     Dates: start: 201305, end: 201307
  2. TAMSULOSIN [Concomitant]
  3. LISINOPRIL [Concomitant]
  4. TRICOR                             /00499301/ [Concomitant]
  5. NORVASC [Concomitant]

REACTIONS (2)
  - Thrombosis [Unknown]
  - Drug ineffective [Unknown]
